FAERS Safety Report 19331557 (Version 2)
Quarter: 2021Q3

REPORT INFORMATION
  Report Type: Report from Study
  Country: US (occurrence: US)
  Receive Date: 20210528
  Receipt Date: 20210826
  Transmission Date: 20211014
  Serious: Yes (Hospitalization, Other)
  Sender: FDA-Public Use
  Company Number: US-GILEAD-2021-0533443

PATIENT
  Age: 87 Year
  Sex: Female

DRUGS (3)
  1. OXYCODONE [Concomitant]
     Active Substance: OXYCODONE
     Indication: PROCEDURAL PAIN
     Dosage: UNK
  2. IDELALISIB [Suspect]
     Active Substance: IDELALISIB
     Indication: LEUKAEMIA
     Dosage: 100 MG, BID
     Route: 048
     Dates: start: 20100101
  3. CENTRUM B [Concomitant]
     Dosage: ONCE A DAY
     Dates: start: 202108

REACTIONS (3)
  - Knee arthroplasty [Recovered/Resolved]
  - Vitamin B complex deficiency [Unknown]
  - Product dose omission issue [Recovered/Resolved]

NARRATIVE: CASE EVENT DATE: 20210518
